FAERS Safety Report 10034535 (Version 1)
Quarter: 2014Q1

REPORT INFORMATION
  Report Type: Spontaneous
  Country: US (occurrence: None)
  Receive Date: 20140306
  Receipt Date: 20140306
  Transmission Date: 20141002
  Serious: Yes (Hospitalization, Other)
  Sender: FDA-Public Use
  Company Number: 163-21880-13021316

PATIENT
  Age: 76 Year
  Sex: Female
  Weight: 65 kg

DRUGS (21)
  1. REVLIMID [Suspect]
     Indication: PLASMA CELL MYELOMA
     Route: 048
     Dates: start: 201209
  2. DOCUSATE SODIUM [Concomitant]
  3. GABAPENTIN [Concomitant]
  4. ASPIRIN [Concomitant]
  5. ATORVASTATIN CALCIUM [Concomitant]
  6. CLOPIDOGREL [Concomitant]
  7. LASIX (FUROSEMIDE) [Concomitant]
  8. ISOSORBIDE MONONITRATE [Concomitant]
  9. KLOR-CON [Concomitant]
  10. LEVOTHROID [Concomitant]
  11. TOVIAZ (FESOTERODINE FUMARATE) [Concomitant]
  12. VITAMIN D (ERGOCALCIFEROL) [Concomitant]
  13. NEURONTIN (GABAPENTIN) [Concomitant]
  14. PRAVACHOL [Concomitant]
  15. IMDUR [Concomitant]
  16. XANAX (ALPRAZOLAM) [Concomitant]
  17. K-DUR (POTASSIUM CHLORIDE) [Concomitant]
  18. PLAVIX (CLOPIDOGREL SULFATE) [Concomitant]
  19. COLACE (DOCUSATE SODIUM) [Concomitant]
  20. VELCADE (BORTEZOMIB) [Concomitant]
  21. DEXAMETHASONE [Concomitant]

REACTIONS (4)
  - Influenza [None]
  - Bronchitis [None]
  - Syncope [None]
  - Head injury [None]
